FAERS Safety Report 15068023 (Version 4)
Quarter: 2019Q1

REPORT INFORMATION
  Report Type: Spontaneous
  Country: JP (occurrence: JP)
  Receive Date: 20180626
  Receipt Date: 20190204
  Transmission Date: 20190417
  Serious: Yes (Life-Threatening, Hospitalization, Disabling, Other)
  Sender: FDA-Public Use
  Company Number: JP-BRISTOL-MYERS SQUIBB COMPANY-BMS-2018-027388

PATIENT
  Age: 82 Year
  Sex: Female
  Weight: 63 kg

DRUGS (5)
  1. PRIMPERAN [Concomitant]
     Active Substance: METOCLOPRAMIDE HYDROCHLORIDE
     Indication: CANCER PAIN
     Dosage: 5 MG, UNK
     Route: 048
     Dates: start: 20170726, end: 20180319
  2. TRAMCET [Concomitant]
     Active Substance: ACETAMINOPHEN\TRAMADOL
     Indication: CANCER PAIN
     Dosage: 1 DF, PRN
     Route: 048
     Dates: start: 20170726, end: 20180319
  3. THICATAREN [Concomitant]
     Indication: RIB FRACTURE
     Dosage: 25 MG, TID
     Route: 048
     Dates: end: 20180319
  4. YERVOY [Suspect]
     Active Substance: IPILIMUMAB
     Indication: MALIGNANT MELANOMA
     Dosage: 166.5 MG, Q3WK
     Route: 041
     Dates: start: 20180110, end: 20180221
  5. REBAMIPIDE [Concomitant]
     Active Substance: REBAMIPIDE
     Indication: RIB FRACTURE
     Dosage: 100 MG, TID
     Route: 048
     Dates: end: 20180319

REACTIONS (3)
  - Hypoglycaemia [Recovered/Resolved]
  - Hypopituitarism [Recovered/Resolved with Sequelae]
  - Altered state of consciousness [Unknown]

NARRATIVE: CASE EVENT DATE: 20180314
